FAERS Safety Report 21102140 (Version 1)
Quarter: 2022Q3

REPORT INFORMATION
  Report Type: Spontaneous
  Country: DE (occurrence: DE)
  Receive Date: 20220719
  Receipt Date: 20220719
  Transmission Date: 20221026
  Serious: Yes (Other)
  Sender: FDA-Public Use
  Company Number: DE-PADAGIS-2022PAD00121

PATIENT

DRUGS (6)
  1. DOXORUBICIN [Suspect]
     Active Substance: DOXORUBICIN
     Indication: Marginal zone lymphoma
     Dosage: (EVERY 3 WEEKS FOR 6 CYCLES)
     Route: 065
  2. RITUXIMAB [Suspect]
     Active Substance: RITUXIMAB
     Indication: Marginal zone lymphoma
     Dosage: (375 MG/M2 ON DAY 1 OF EACH CYCLE)
     Route: 065
  3. CYCLOPHOSPHAMIDE [Suspect]
     Active Substance: CYCLOPHOSPHAMIDE
     Indication: Marginal zone lymphoma
     Dosage: (EVERY 3 WEEKS FOR 6 CYCLES)
     Route: 065
  4. VINCRISTINE [Suspect]
     Active Substance: VINCRISTINE
     Indication: Marginal zone lymphoma
     Dosage: (EVERY 3 WEEKS FOR 6 CYCLES)
     Route: 065
  5. PREDNISONE [Suspect]
     Active Substance: PREDNISONE
     Indication: Marginal zone lymphoma
     Dosage: EVERY 3 WEEKS FOR 6 CYCLES)
     Route: 065
  6. OBINUTUZUMAB [Suspect]
     Active Substance: OBINUTUZUMAB
     Indication: Marginal zone lymphoma
     Dosage: 1000 MG ON DAY [D] 1, 8, AND
     Route: 065

REACTIONS (15)
  - Neutropenia [Unknown]
  - Thrombocytopenia [Unknown]
  - Febrile neutropenia [Unknown]
  - Syncope [Unknown]
  - Leukopenia [Unknown]
  - Pulmonary embolism [Unknown]
  - Sepsis [Unknown]
  - Dyspnoea [Unknown]
  - Infusion related reaction [Unknown]
  - Anaemia [Unknown]
  - Respiratory tract infection [Unknown]
  - Vomiting [Unknown]
  - Dehydration [Unknown]
  - Abdominal pain [Unknown]
  - Product use in unapproved indication [Unknown]
